FAERS Safety Report 4875105-1 (Version None)
Quarter: 2006Q1

REPORT INFORMATION
  Report Type: 
  Country: None (occurrence: None)
  Receive Date: 20060109
  Receipt Date: 20051227
  Transmission Date: 20060701
  Serious: Yes (Hospitalization)
  Sender: FDA-Public Use
  Company Number: JP-JPN-A20053212

PATIENT
  Age: 1 Year
  Sex: Male
  Weight: 10.7 kg

DRUGS (11)
  1. FLUTIDE [Suspect]
     Indication: ASTHMA
     Route: 055
     Dates: start: 20040515
  2. PREDONINE [Suspect]
     Route: 048
     Dates: start: 20040608
  3. THEO-DUR [Concomitant]
     Indication: ASTHMA
     Dosage: 50MG TWICE PER DAY
     Route: 048
     Dates: start: 20040610
  4. ONON DRYSYRUP [Concomitant]
     Indication: ASTHMA
     Dosage: 35MG TWICE PER DAY
     Route: 048
     Dates: start: 20040610
  5. ERYTHROMYCIN [Concomitant]
     Dosage: 50MG TWICE PER DAY
     Route: 048
     Dates: start: 20040610
  6. MUCODYNE [Concomitant]
     Indication: ASTHMA
     Dosage: 150MG TWICE PER DAY
     Route: 048
     Dates: start: 20040610
  7. CELTECT [Concomitant]
     Indication: ASTHMA
     Dosage: 4MG TWICE PER DAY
     Route: 048
     Dates: start: 20040610
  8. HOKUNALIN [Concomitant]
     Indication: ASTHMA
     Dosage: .1MG TWICE PER DAY
     Route: 048
     Dates: start: 20040610
  9. INTAL [Concomitant]
     Indication: ASTHMA
     Dosage: 4 PER DAY
     Route: 055
     Dates: start: 20040505
  10. LASIX [Concomitant]
     Indication: CARDIAC FAILURE
     Dosage: 2.5MG TWICE PER DAY
     Route: 048
     Dates: start: 20040925
  11. ALDACTONE [Concomitant]
     Indication: CARDIAC FAILURE
     Dosage: 2.5MG TWICE PER DAY
     Route: 048
     Dates: start: 20040925

REACTIONS (3)
  - ADRENAL INSUFFICIENCY [None]
  - BLOOD GLUCOSE DECREASED [None]
  - CONVULSION [None]
